FAERS Safety Report 19384256 (Version 1)
Quarter: 2021Q2

REPORT INFORMATION
  Report Type: Spontaneous
  Country: FR (occurrence: FR)
  Receive Date: 20210608
  Receipt Date: 20210608
  Transmission Date: 20210717
  Serious: Yes (Death, Other)
  Sender: FDA-Public Use
  Company Number: FR-AUROBINDO-AUR-APL-2021-023442

PATIENT
  Sex: Female

DRUGS (4)
  1. MELPHALAN. [Suspect]
     Active Substance: MELPHALAN
     Indication: TRANSPLANT
     Dosage: UNK
     Route: 042
     Dates: start: 20160909, end: 20160914
  2. CYTARABINE. [Suspect]
     Active Substance: CYTARABINE
     Indication: TRANSPLANT
     Dosage: UNK
     Route: 042
     Dates: start: 20160909, end: 20160914
  3. ETOPOSIDE. [Suspect]
     Active Substance: ETOPOSIDE
     Indication: TRANSPLANT
     Dosage: UNK
     Route: 042
     Dates: start: 20160909, end: 20160914
  4. CARMUSTINE. [Suspect]
     Active Substance: CARMUSTINE
     Indication: TRANSPLANT
     Dosage: UNK
     Route: 042
     Dates: start: 20160909, end: 20160914

REACTIONS (4)
  - Necrotising oesophagitis [Fatal]
  - Hepatic ischaemia [Fatal]
  - Intestinal ischaemia [Fatal]
  - Ischaemic gastritis [Fatal]

NARRATIVE: CASE EVENT DATE: 201609
